FAERS Safety Report 8592918-3 (Version None)
Quarter: 2012Q3

REPORT INFORMATION
  Report Type: 
  Country: None (occurrence: None)
  Receive Date: 20120814
  Receipt Date: 20120809
  Transmission Date: 20120928
  Serious: Yes (Other)
  Sender: FDA-Public Use
  Company Number: AU-009507513-1208AUS005017

PATIENT

DRUGS (3)
  1. INDERAL [Concomitant]
  2. PEGASYS [Concomitant]
     Dosage: UNK
     Dates: start: 20120410, end: 20120720
  3. VICTRELIS [Suspect]
     Indication: HEPATITIS C
     Dosage: UNK
     Route: 048
     Dates: start: 20120508, end: 20120720

REACTIONS (4)
  - FEELING ABNORMAL [None]
  - DEAFNESS UNILATERAL [None]
  - DRUG INEFFECTIVE [None]
  - DIZZINESS [None]
